FAERS Safety Report 13366654 (Version 1)
Quarter: 2017Q1

REPORT INFORMATION
  Report Type: Spontaneous
  Country: UY (occurrence: US)
  Receive Date: 20170323
  Receipt Date: 20170323
  Transmission Date: 20170429
  Serious: Yes (Other)
  Sender: FDA-Public Use
  Company Number: None

PATIENT
  Age: 30 Year
  Sex: Female
  Weight: 60 kg

DRUGS (4)
  1. THORACIC STENT [Concomitant]
  2. CORENTEL [Concomitant]
  3. WARFARIN [Concomitant]
     Active Substance: WARFARIN
  4. CLOPIGREL 75 MG [Suspect]
     Active Substance: CLOPIDOGREL BISULFATE
     Route: 048

REACTIONS (2)
  - Cerebrovascular accident [None]
  - Vascular stent thrombosis [None]

NARRATIVE: CASE EVENT DATE: 20170123
